FAERS Safety Report 4332095-8 (Version None)
Quarter: 2004Q2

REPORT INFORMATION
  Report Type: 
  Country: None (occurrence: None)
  Receive Date: 20040405
  Receipt Date: 20040330
  Transmission Date: 20050107
  Serious: Yes (Other)
  Sender: FDA-Public Use
  Company Number: US-GLAXOSMITHKLINE-A0505115A

PATIENT
  Age: 47 Year
  Sex: Female

DRUGS (5)
  1. ADVAIR DISKUS 100/50 [Suspect]
     Indication: ASTHMA
     Dosage: 1PUFF TWICE PER DAY
     Route: 055
     Dates: start: 20020101, end: 20040330
  2. PREDNISONE [Suspect]
     Indication: ARTHRITIS
     Dosage: 5MG PER DAY
     Route: 048
     Dates: start: 20010101
  3. PLAQUENIL [Concomitant]
     Indication: ARTHRITIS
     Dosage: 200MG TWICE PER DAY
     Route: 048
     Dates: start: 20010101, end: 20030101
  4. ALLEGRA [Concomitant]
  5. ALBUTEROL [Concomitant]

REACTIONS (3)
  - EYE HAEMORRHAGE [None]
  - INTRAOCULAR PRESSURE INCREASED [None]
  - VISION BLURRED [None]
